FAERS Safety Report 5021338-3 (Version None)
Quarter: 2006Q2

REPORT INFORMATION
  Report Type: 
  Country: None (occurrence: None)
  Receive Date: 20060608
  Receipt Date: 20050819
  Transmission Date: 20061013
  Serious: No
  Sender: FDA-Public Use
  Company Number: US-BRISTOL-MYERS SQUIBB COMPANY-13084199

PATIENT
  Age: 76 Year
  Sex: Male

DRUGS (2)
  1. SINEMET [Suspect]
  2. STALEVO 100 [Suspect]

REACTIONS (2)
  - HEADACHE [None]
  - VOMITING [None]
